FAERS Safety Report 10075755 (Version 1)
Quarter: 2014Q2

REPORT INFORMATION
  Report Type: Spontaneous
  Country: US (occurrence: US)
  Receive Date: 20140414
  Receipt Date: 20140414
  Transmission Date: 20141212
  Serious: Yes (Disabling, Other)
  Sender: FDA-Public Use
  Company Number: PHEH2014US006641

PATIENT
  Sex: Male

DRUGS (10)
  1. DIOVAN HCT [Suspect]
     Dosage: UNK UKN, UNK
  2. HYDROCHLOROTHIAZIDE,VALSARTAN [Suspect]
     Dosage: 1 DF (160 MG VALS+25 MG HCT), UNK
  3. GEMFIBROZIL [Suspect]
     Dosage: UNK UKN, UNK
  4. LYRICA [Concomitant]
     Dosage: 150 MG, UNK
  5. METFORMIN [Concomitant]
     Dosage: 1000 MG, UNK
  6. DICLOFENAC [Concomitant]
     Dosage: UNK (75/200 MG) (AS REPORTED)
  7. DULOXETINE [Concomitant]
     Dosage: 60 MG, UNK
  8. TERAZOSIN [Concomitant]
     Dosage: 5 MG, UNK
  9. ONGLYZA [Concomitant]
     Dosage: 5 MG, UNK
  10. PRILOSEC [Concomitant]
     Dosage: 20 MG, UNK

REACTIONS (7)
  - Diabetes mellitus [Unknown]
  - Back disorder [Unknown]
  - Hypokinesia [Unknown]
  - Limb discomfort [Unknown]
  - Pain in extremity [Unknown]
  - Oedema peripheral [Unknown]
  - Drug ineffective [Unknown]
